FAERS Safety Report 9324698 (Version 1)
Quarter: 2013Q2

REPORT INFORMATION
  Report Type: Spontaneous
  Country: FR (occurrence: FR)
  Receive Date: 20130603
  Receipt Date: 20130603
  Transmission Date: 20140414
  Serious: Yes (Hospitalization)
  Sender: FDA-Public Use
  Company Number: FR-GLAXOSMITHKLINE-B0895441A

PATIENT
  Age: 83 Year
  Sex: Female

DRUGS (11)
  1. ZELITREX [Suspect]
     Indication: HERPES ZOSTER
     Route: 048
     Dates: start: 20130424, end: 20130426
  2. BREXIN [Suspect]
     Indication: HERPES ZOSTER
     Route: 048
     Dates: start: 20130424, end: 20130426
  3. FLUDEX [Suspect]
     Indication: HYPERTENSION
     Route: 048
  4. LEVOTHYROX [Concomitant]
  5. LIPANTHYL [Concomitant]
  6. CELIPROLOL [Concomitant]
  7. PAROXETINE [Concomitant]
  8. PAROXETINE [Concomitant]
  9. LEVOTHYROX [Concomitant]
  10. LIPANTHYL [Concomitant]
  11. CELIPROLOL [Concomitant]

REACTIONS (3)
  - Renal failure acute [Recovered/Resolved]
  - Hyponatraemia [Recovered/Resolved]
  - Confusional state [Recovered/Resolved]
